FAERS Safety Report 4708112-X (Version None)
Quarter: 2005Q3

REPORT INFORMATION
  Report Type: 
  Country: None (occurrence: None)
  Receive Date: 20050705
  Receipt Date: 20050705
  Transmission Date: 20060218
  Serious: Yes (Other)
  Sender: FDA-Public Use
  Company Number: None

PATIENT
  Age: 50 Year
  Sex: Male
  Weight: 74.8435 kg

DRUGS (6)
  1. VIAGRA [Suspect]
     Indication: ERECTILE DYSFUNCTION
     Dosage: ONE HOUR BEFORE SEX
  2. PERCOCET [Concomitant]
  3. NORVASC [Concomitant]
  4. PRILOSEC [Concomitant]
  5. FLEXERIL [Concomitant]
  6. CELEBREX [Concomitant]

REACTIONS (1)
  - XANTHOPSIA [None]
